FAERS Safety Report 5353272-3 (Version None)
Quarter: 2007Q2

REPORT INFORMATION
  Report Type: 
  Country: None (occurrence: None)
  Receive Date: 20070518
  Receipt Date: 20070205
  Transmission Date: 20071010
  Serious: No
  Sender: FDA-Public Use
  Company Number: TAP2007A00302

PATIENT
  Age: 81 Year
  Sex: Female
  Weight: 60.3284 kg

DRUGS (4)
  1. ROZEREM [Suspect]
     Indication: INSOMNIA
     Dosage: 8 MG, HS, PER ORAL
     Route: 048
     Dates: start: 20070129
  2. SLEEP MD (SCOPOLAMINE AMINOXIDE HYDROBROMIDE) [Suspect]
     Indication: SLEEP DISORDER
     Dosage: PER ORAL
     Route: 048
     Dates: start: 20070204, end: 20070205
  3. CALTRATE D (CALCIUM CARBONATE, VITAMIN D NOS) [Concomitant]
  4. ACTONEL [Concomitant]

REACTIONS (1)
  - HEART RATE INCREASED [None]
